FAERS Safety Report 24218176 (Version 1)
Quarter: 2024Q3

REPORT INFORMATION
  Report Type: Spontaneous
  Country: US (occurrence: US)
  Receive Date: 20240816
  Receipt Date: 20240816
  Transmission Date: 20241016
  Serious: No
  Sender: PFIZER
  Company Number: US-PFIZER INC-202400237002

PATIENT
  Age: 66 Year
  Sex: Female

DRUGS (2)
  1. XELJANZ XR [Interacting]
     Active Substance: TOFACITINIB CITRATE
     Dosage: 11 MG, DAILY
     Route: 048
  2. RESTASIS [Interacting]
     Active Substance: CYCLOSPORINE
     Indication: Eye disorder
     Dosage: 1 DROP, 2X/DAY
     Route: 047

REACTIONS (2)
  - Drug hypersensitivity [Unknown]
  - Labelled drug-drug interaction medication error [Unknown]
